FAERS Safety Report 4844501-0 (Version None)
Quarter: 2005Q4

REPORT INFORMATION
  Report Type: 
  Country: None (occurrence: None)
  Receive Date: 20051203
  Receipt Date: 20051124
  Transmission Date: 20060501
  Serious: Yes (Hospitalization, Other)
  Sender: FDA-Public Use
  Company Number: PHFR2005GB03858

PATIENT
  Age: 50 Year
  Sex: Female

DRUGS (3)
  1. CLOZARIL [Suspect]
     Indication: SCHIZOPHRENIA
     Dosage: 75MG/DAY
     Route: 048
     Dates: start: 20051024
  2. CLOZARIL [Suspect]
     Dosage: OVERDOSE
  3. PARACETAMOL [Suspect]
     Dosage: OVERDOSE
     Route: 065

REACTIONS (3)
  - ACTIVATED PARTIAL THROMBOPLASTIN TIME ABNORMAL [None]
  - HEPATOCELLULAR DAMAGE [None]
  - OVERDOSE [None]
